FAERS Safety Report 24068141 (Version 1)
Quarter: 2024Q3

REPORT INFORMATION
  Report Type: Spontaneous
  Country: BE (occurrence: BE)
  Receive Date: 20240710
  Receipt Date: 20240710
  Transmission Date: 20241016
  Serious: Yes (Other)
  Sender: CHEPLAPHARM
  Company Number: None

PATIENT
  Age: 53 Year
  Sex: Female
  Weight: 60 kg

DRUGS (8)
  1. OLANZAPINE [Suspect]
     Active Substance: OLANZAPINE
     Indication: Sleep disorder
     Route: 048
     Dates: start: 20240327, end: 20240328
  2. OLANZAPINE [Suspect]
     Active Substance: OLANZAPINE
     Indication: Nausea
     Route: 048
     Dates: start: 20240327, end: 20240328
  3. CLONAZEPAM [Suspect]
     Active Substance: CLONAZEPAM
     Route: 048
  4. SIMVASTATIN [Concomitant]
     Active Substance: SIMVASTATIN
  5. SERTRALINE HYDROCHLORIDE [Concomitant]
     Active Substance: SERTRALINE HYDROCHLORIDE
  6. Pantomed [Concomitant]
  7. ASPIRIN [Concomitant]
     Active Substance: ASPIRIN
  8. BILASTINE [Concomitant]
     Active Substance: BILASTINE

REACTIONS (6)
  - Agitation [Not Recovered/Not Resolved]
  - Head discomfort [Not Recovered/Not Resolved]
  - Aphasia [Not Recovered/Not Resolved]
  - Asthenia [Not Recovered/Not Resolved]
  - Gait disturbance [Recovering/Resolving]
  - Product use in unapproved indication [Unknown]

NARRATIVE: CASE EVENT DATE: 20240327
